FAERS Safety Report 19854431 (Version 9)
Quarter: 2022Q4

REPORT INFORMATION
  Report Type: Report from Study
  Country: US (occurrence: US)
  Receive Date: 20210920
  Receipt Date: 20221208
  Transmission Date: 20230112
  Serious: Yes (Hospitalization)
  Sender: FDA-Public Use
  Company Number: US-BOEHRINGERINGELHEIM-2021-BI-110594

PATIENT
  Age: 77 Year
  Sex: Male

DRUGS (3)
  1. OFEV [Suspect]
     Active Substance: NINTEDANIB
     Indication: Idiopathic pulmonary fibrosis
     Route: 048
     Dates: start: 20210614
  2. OFEV [Suspect]
     Active Substance: NINTEDANIB
     Route: 048
     Dates: start: 20210725, end: 20210812
  3. OFEV [Suspect]
     Active Substance: NINTEDANIB
     Dates: start: 20211024

REACTIONS (12)
  - COVID-19 [Not Recovered/Not Resolved]
  - Asthenia [Unknown]
  - Influenza [Unknown]
  - Cough [Unknown]
  - Diarrhoea [Unknown]
  - Throat clearing [Unknown]
  - Paranasal sinus hypersecretion [Unknown]
  - Secretion discharge [Unknown]
  - Diarrhoea [Recovered/Resolved]
  - Gastrooesophageal reflux disease [Not Recovered/Not Resolved]
  - Product use complaint [Unknown]
  - Dyspnoea exertional [Unknown]
